FAERS Safety Report 4417943-5 (Version None)
Quarter: 2004Q2

REPORT INFORMATION
  Report Type: 
  Country: None (occurrence: None)
  Receive Date: 20040622
  Receipt Date: 20040105
  Transmission Date: 20050107
  Serious: Yes (Death, Hospitalization)
  Sender: FDA-Public Use
  Company Number: 355157

PATIENT
  Age: 67 Year
  Sex: Female
  Weight: 86.2 kg

DRUGS (5)
  1. XELODA [Suspect]
     Indication: GALLBLADDER CANCER
     Dosage: 1500 MG 2 PER DAY ORAL
     Route: 048
     Dates: start: 20031104, end: 20031205
  2. METHADONE HCL [Concomitant]
  3. REGULAN (PSYLLIUM HUSK) [Concomitant]
  4. AUGMENTIN (AMOXICILLIN OR AMOXICILLIN SODIUM/CLAVULANATE POTASSIUM) [Concomitant]
  5. MEGACE [Concomitant]

REACTIONS (10)
  - ABDOMINAL ABSCESS [None]
  - BILIARY FISTULA [None]
  - DISEASE PROGRESSION [None]
  - FEMALE GENITAL-DIGESTIVE TRACT FISTULA [None]
  - GALLBLADDER CANCER STAGE IV [None]
  - NAUSEA [None]
  - PAIN [None]
  - PYREXIA [None]
  - SEPSIS [None]
  - VOMITING [None]
